FAERS Safety Report 6088066-7 (Version None)
Quarter: 2009Q1

REPORT INFORMATION
  Report Type: 
  Country: None (occurrence: None)
  Receive Date: 20090218
  Receipt Date: 20090206
  Transmission Date: 20090719
  Serious: Yes (Death)
  Sender: FDA-Public Use
  Company Number: 2009000366

PATIENT
  Age: 65 Year
  Sex: Male
  Weight: 53.5 kg

DRUGS (1)
  1. ERLOTINIB (ERLOTINIB) (TABLET) (ERLOTINIB) [Suspect]
     Indication: NON-SMALL CELL LUNG CANCER
     Dosage: (150 MG, QD) ,ORAL
     Route: 048
     Dates: start: 20080717, end: 20080928

REACTIONS (1)
  - DEATH [None]
